FAERS Safety Report 9580288 (Version 2)
Quarter: 2014Q3

REPORT INFORMATION
  Report Type: Spontaneous
  Country: US (occurrence: None)
  Receive Date: 20130916
  Receipt Date: 20140915
  Transmission Date: 20150326
  Serious: Yes (Other)
  Sender: FDA-Public Use
  Company Number: JPI-P-032946

PATIENT
  Age: 35 Year
  Sex: Female

DRUGS (12)
  1. ARIPIPRAZOLE [Suspect]
     Active Substance: ARIPIPRAZOLE
     Indication: PRODUCT USED FOR UNKNOWN INDICATION
     Dates: start: 201306, end: 201306
  2. VITAMIN D (ERGOCALCIFEROL) [Concomitant]
     Active Substance: ERGOCALCIFEROL
  3. RISPERIDONE. [Concomitant]
     Active Substance: RISPERIDONE
  4. BISOPROLOL [Concomitant]
     Active Substance: BISOPROLOL
  5. ARMODAFINIL. [Concomitant]
     Active Substance: ARMODAFINIL
  6. VITAMINS [Concomitant]
     Active Substance: VITAMINS
  7. DESVENLAFAXINE. [Suspect]
     Active Substance: DESVENLAFAXINE
     Indication: PRODUCT USED FOR UNKNOWN INDICATION
     Dates: start: 201306, end: 201306
  8. ESCITALOPRAM OXALATE. [Concomitant]
     Active Substance: ESCITALOPRAM OXALATE
  9. ORAL CONTRACEPTIVE [Concomitant]
     Active Substance: UNSPECIFIED INGREDIENT
  10. XYREM [Suspect]
     Active Substance: SODIUM OXYBATE
     Indication: NARCOLEPSY
     Route: 048
     Dates: start: 20130417, end: 2013
  11. RANITIDINE HYDROCHLORIDE. [Concomitant]
     Active Substance: RANITIDINE HYDROCHLORIDE
  12. VITAMIN D (ERGOCALCIFEROL) [Concomitant]
     Active Substance: ERGOCALCIFEROL

REACTIONS (17)
  - Anxiety [None]
  - Abnormal dreams [None]
  - Vertigo [None]
  - Panic attack [None]
  - Dyspnoea [None]
  - Anger [None]
  - Crying [None]
  - Muscle twitching [None]
  - Dizziness [None]
  - Nausea [None]
  - Fatigue [None]
  - Suicidal ideation [None]
  - Depression [None]
  - Blood pressure abnormal [None]
  - Condition aggravated [None]
  - Insomnia [None]
  - Fall [None]

NARRATIVE: CASE EVENT DATE: 2013
